FAERS Safety Report 14965127 (Version 1)
Quarter: 2018Q2

REPORT INFORMATION
  Report Type: Spontaneous
  Country: US (occurrence: US)
  Receive Date: 20180601
  Receipt Date: 20180601
  Transmission Date: 20180711
  Serious: Yes (Other)
  Sender: FDA-Public Use
  Company Number: US-TEVA-2018-US-898379

PATIENT
  Age: 76 Year
  Sex: Female
  Weight: 88 kg

DRUGS (5)
  1. QVAR [Suspect]
     Active Substance: BECLOMETHASONE DIPROPIONATE
     Indication: ASTHMA
     Route: 065
     Dates: start: 2015
  2. PROAIR HFA [Suspect]
     Active Substance: ALBUTEROL SULFATE
     Indication: ASTHMA
     Route: 065
  3. ARMOUR THYROID [Concomitant]
     Active Substance: THYROID, PORCINE
     Indication: AUTOIMMUNE THYROIDITIS
  4. TOBRAMYCIN/DEXAMETHASONE OPHTHALMIC SOLUTION [Concomitant]
     Indication: CATARACT OPERATION
     Route: 065
  5. ARMOUR THYROID [Concomitant]
     Active Substance: THYROID, PORCINE
     Indication: HYPOTHYROIDISM
     Route: 065

REACTIONS (7)
  - Hordeolum [Unknown]
  - Eye infection [Unknown]
  - General physical health deterioration [Unknown]
  - Drug prescribing error [Unknown]
  - Intentional product use issue [Unknown]
  - Pneumonia [Unknown]
  - Cataract [Unknown]

NARRATIVE: CASE EVENT DATE: 201803
